FAERS Safety Report 25723638 (Version 1)
Quarter: 2025Q3

REPORT INFORMATION
  Report Type: Spontaneous
  Country: GB (occurrence: GB)
  Receive Date: 20250825
  Receipt Date: 20250825
  Transmission Date: 20251020
  Serious: Yes (Disabling, Other)
  Sender: PFIZER
  Company Number: None

PATIENT
  Age: 76 Year
  Sex: Male

DRUGS (2)
  1. DOXYCYCLINE [Suspect]
     Active Substance: DOXYCYCLINE
     Indication: Lower respiratory tract infection
  2. DOXYCYCLINE [Suspect]
     Active Substance: DOXYCYCLINE
     Dates: start: 20250808, end: 20250809

REACTIONS (4)
  - Tendonitis [Not Recovered/Not Resolved]
  - Tendon rupture [Unknown]
  - Myositis [Unknown]
  - Myalgia [Unknown]

NARRATIVE: CASE EVENT DATE: 20250808
